FAERS Safety Report 15066615 (Version 1)
Quarter: 2018Q2

REPORT INFORMATION
  Report Type: Spontaneous
  Country: ES (occurrence: ES)
  Receive Date: 20180626
  Receipt Date: 20180626
  Transmission Date: 20180711
  Serious: Yes (Hospitalization)
  Sender: FDA-Public Use
  Company Number: ES-ASTRAZENECA-2018SE79852

PATIENT
  Age: 59 Year
  Sex: Female

DRUGS (5)
  1. AMILORIDE, HYDROCHLOROTHIAZIDE [Concomitant]
     Active Substance: AMILORIDE HYDROCHLORIDE\HYDROCHLOROTHIAZIDE
     Dosage: 5-50 MG/DAY
     Route: 065
  2. ESOMEPRAZOLE MAGNESIUM. [Suspect]
     Active Substance: ESOMEPRAZOLE MAGNESIUM
     Indication: ABDOMINAL PAIN UPPER
     Route: 048
  3. SIMVASTATIN. [Concomitant]
     Active Substance: SIMVASTATIN
     Route: 065
  4. ACENOCUMAROL [Concomitant]
     Active Substance: ACENOCOUMAROL
     Dosage: PRN
     Route: 065
  5. VALSARTAN. [Concomitant]
     Active Substance: VALSARTAN
     Route: 065

REACTIONS (4)
  - Tetany [Unknown]
  - Hypocalcaemia [Recovered/Resolved]
  - Paraesthesia [Unknown]
  - Hypomagnesaemia [Recovered/Resolved]
